FAERS Safety Report 4706299-6 (Version None)
Quarter: 2005Q2

REPORT INFORMATION
  Report Type: 
  Country: None (occurrence: None)
  Receive Date: 20050629
  Receipt Date: 20050426
  Transmission Date: 20051028
  Serious: Yes (Life-Threatening, Hospitalization)
  Sender: FDA-Public Use
  Company Number: 05P-163-0294182-00

PATIENT
  Age: 44 Year
  Sex: Male
  Weight: 81.6475 kg

DRUGS (5)
  1. HUMIRA [Suspect]
     Indication: ANKYLOSING SPONDYLITIS
     Dosage: 40 MG, 1 IN 2 WK, SUBCUTANEOUS
     Route: 058
     Dates: start: 20040901, end: 20041201
  2. REMICADE [Suspect]
     Dosage: 7.5 MG, 1 IN 2 WK, INTRAVENOUS
     Route: 042
  3. METHOTREXATE [Suspect]
     Dosage: 2.5 MG, 10 IN 1 WK
     Dates: start: 20030101, end: 20041201
  4. ZOCOR [Concomitant]
  5. ESOMEPRAZOLE [Concomitant]

REACTIONS (2)
  - HEPATIC ENZYME INCREASED [None]
  - HISTOPLASMOSIS DISSEMINATED [None]
